FAERS Safety Report 7048443-4 (Version None)
Quarter: 2010Q4

REPORT INFORMATION
  Report Type: 
  Country: None (occurrence: None)
  Receive Date: 20101015
  Receipt Date: 20101015
  Transmission Date: 20110411
  Serious: Yes (Other)
  Sender: FDA-Public Use
  Company Number: None

PATIENT
  Sex: Female
  Weight: 68.0396 kg

DRUGS (1)
  1. FENTANYL CITRATE [Suspect]
     Indication: PAIN
     Dosage: 1600 MCG 1 SUCKER @HS ORAL THE MONTH OF SEPT.
     Route: 048

REACTIONS (4)
  - DYSGEUSIA [None]
  - NO THERAPEUTIC RESPONSE [None]
  - PRODUCT FRIABLE [None]
  - PRODUCT TASTE ABNORMAL [None]
